FAERS Safety Report 7149144-4 (Version None)
Quarter: 2010Q4

REPORT INFORMATION
  Report Type: 
  Country: None (occurrence: None)
  Receive Date: 20101209
  Receipt Date: 20101201
  Transmission Date: 20110411
  Serious: Yes (Hospitalization)
  Sender: FDA-Public Use
  Company Number: CN-PFIZER INC-2010161339

PATIENT
  Age: 73 Year
  Sex: Female

DRUGS (1)
  1. LIPITOR [Suspect]
     Dosage: 1 TABLET, 1X/DAY
     Route: 048
     Dates: start: 20101016, end: 20101130

REACTIONS (1)
  - CEREBRAL INFARCTION [None]
